FAERS Safety Report 5448880-5 (Version None)
Quarter: 2007Q3

REPORT INFORMATION
  Report Type: 
  Country: None (occurrence: None)
  Receive Date: 20070911
  Receipt Date: 20070813
  Transmission Date: 20080115
  Serious: No
  Sender: FDA-Public Use
  Company Number: US-BRISTOL-MYERS SQUIBB COMPANY-13875471

PATIENT
  Age: 46 Year
  Sex: Male
  Weight: 159 kg

DRUGS (7)
  1. EMSAM [Suspect]
     Indication: DEPRESSION
     Route: 062
     Dates: start: 20061101
  2. VASOTEC [Suspect]
  3. RISPERDAL [Concomitant]
  4. ZETIA [Concomitant]
  5. LIPITOR [Concomitant]
  6. AMBIEN [Concomitant]
  7. TOPAMAX [Concomitant]

REACTIONS (1)
  - FATIGUE [None]
